FAERS Safety Report 6911004-9 (Version None)
Quarter: 2010Q3

REPORT INFORMATION
  Report Type: 
  Country: None (occurrence: None)
  Receive Date: 20100806
  Receipt Date: 20100730
  Transmission Date: 20110219
  Serious: Yes (Disabling, Other)
  Sender: FDA-Public Use
  Company Number: A0873216A

PATIENT
  Age: 50 Year
  Sex: Female

DRUGS (3)
  1. ADVAIR DISKUS 100/50 [Suspect]
     Indication: ASTHMA
     Dosage: 1PUFF TWICE PER DAY
     Route: 055
     Dates: start: 20100713, end: 20100714
  2. ALBUTEROL [Concomitant]
  3. BONIVA [Concomitant]

REACTIONS (5)
  - FEAR [None]
  - HYPERSENSITIVITY [None]
  - PHARYNGEAL OEDEMA [None]
  - THROAT TIGHTNESS [None]
  - TYPE IV HYPERSENSITIVITY REACTION [None]
